FAERS Safety Report 20455753 (Version 2)
Quarter: 2022Q2

REPORT INFORMATION
  Report Type: Report from Study
  Country: FR (occurrence: FR)
  Receive Date: 20220210
  Receipt Date: 20220401
  Transmission Date: 20220720
  Serious: Yes (Life-Threatening, Hospitalization)
  Sender: FDA-Public Use
  Company Number: FR-SERVIER-S22001238

PATIENT

DRUGS (6)
  1. PEGASPARGASE [Suspect]
     Active Substance: PEGASPARGASE
     Indication: Acute lymphocytic leukaemia
     Dosage: 3650 IU, D43
     Route: 042
     Dates: start: 20220103, end: 20220103
  2. CYTARABINE [Suspect]
     Active Substance: CYTARABINE
     Indication: Acute lymphocytic leukaemia
     Dosage: 30 MG, D31
     Route: 037
     Dates: start: 20211224, end: 20211224
  3. CYTARABINE [Suspect]
     Active Substance: CYTARABINE
     Dosage: 110 MG, D38 AND D41
     Route: 042
     Dates: start: 20211227, end: 20211230
  4. VINCRISTINE SULFATE [Suspect]
     Active Substance: VINCRISTINE SULFATE
     Indication: Acute lymphocytic leukaemia
     Dosage: 2 MG, D43
     Route: 042
     Dates: start: 20220103, end: 20220103
  5. TN UNSPECIFIED [Concomitant]
     Indication: Acute lymphocytic leukaemia
     Dosage: 15 MG, D31
     Route: 037
     Dates: start: 20211224, end: 20211224
  6. TN UNSPECIFIED [Concomitant]
     Indication: Acute lymphocytic leukaemia
     Dosage: 10 MG, D31
     Route: 037
     Dates: start: 20211224, end: 20211224

REACTIONS (5)
  - Septic shock [Recovering/Resolving]
  - Fungal infection [Recovering/Resolving]
  - Cardiomyopathy [Recovering/Resolving]
  - Acute kidney injury [Recovering/Resolving]
  - Electrolyte imbalance [Recovering/Resolving]

NARRATIVE: CASE EVENT DATE: 20220111
